FAERS Safety Report 7497431-2 (Version None)
Quarter: 2011Q2

REPORT INFORMATION
  Report Type: 
  Country: None (occurrence: None)
  Receive Date: 20110516
  Receipt Date: 20110512
  Transmission Date: 20111010
  Serious: Yes (Other)
  Sender: FDA-Public Use
  Company Number: 2010SP057792

PATIENT
  Age: 30 Year
  Sex: Male

DRUGS (2)
  1. LUVOX [Concomitant]
  2. REMERON [Suspect]
     Indication: DEPRESSION
     Dosage: 15 MG; QD; PO
     Route: 048
     Dates: start: 20090901, end: 20091001

REACTIONS (2)
  - HYPERGLYCAEMIA [None]
  - MALAISE [None]
